FAERS Safety Report 12485690 (Version 2)
Quarter: 2016Q3

REPORT INFORMATION
  Report Type: Spontaneous
  Country: FR (occurrence: FR)
  Receive Date: 20160621
  Receipt Date: 20160722
  Transmission Date: 20161109
  Serious: Yes (Other)
  Sender: FDA-Public Use
  Company Number: PHHY2016FR084882

PATIENT
  Age: 64 Year
  Sex: Female
  Weight: 65 kg

DRUGS (2)
  1. ACLASTA [Suspect]
     Active Substance: ZOLEDRONIC ACID
     Indication: OSTEOPOROSIS
     Dosage: UNK
     Route: 042
  2. ACLASTA [Suspect]
     Active Substance: ZOLEDRONIC ACID
     Dosage: 5 MG, ONCE YEARLY
     Route: 042
     Dates: start: 20160615

REACTIONS (5)
  - Incorrect dose administered [Unknown]
  - Accidental exposure to product [Recovered/Resolved]
  - Extravasation [Recovered/Resolved]
  - Injection site oedema [Recovered/Resolved]
  - Vein rupture [Recovered/Resolved]

NARRATIVE: CASE EVENT DATE: 20160615
